FAERS Safety Report 16175105 (Version 1)
Quarter: 2019Q2

REPORT INFORMATION
  Report Type: Spontaneous
  Country: CO (occurrence: CO)
  Receive Date: 20190409
  Receipt Date: 20190409
  Transmission Date: 20190711
  Serious: Yes (Death, Hospitalization, Other)
  Sender: FDA-Public Use
  Company Number: CO-ABBVIE-19S-036-2679761-00

PATIENT
  Age: 70 Year
  Sex: Male
  Weight: 63 kg

DRUGS (2)
  1. VIEKIRA PAK [Suspect]
     Active Substance: DASABUVIR\OMBITASVIR\PARITAPREVIR\RITONAVIR
     Indication: HEPATITIS C
     Dosage: 12.5MG / 75MG / 50MG AND 250MG
     Route: 048
     Dates: start: 20190214
  2. VIEKIRA PAK [Suspect]
     Active Substance: DASABUVIR\OMBITASVIR\PARITAPREVIR\RITONAVIR
     Indication: HEPATIC CIRRHOSIS

REACTIONS (16)
  - Cognitive disorder [Fatal]
  - Hyperbilirubinaemia [Fatal]
  - Malnutrition [Fatal]
  - Bradyphrenia [Fatal]
  - Thrombocytopenia [Fatal]
  - Asthenia [Fatal]
  - Dehydration [Fatal]
  - Hepatic cirrhosis [Fatal]
  - Coagulation time prolonged [Fatal]
  - Neutrophilia [Fatal]
  - Pallor [Fatal]
  - Disorientation [Fatal]
  - Blood acid phosphatase increased [Fatal]
  - Slow speech [Fatal]
  - Hepatic encephalopathy [Fatal]
  - Transaminases increased [Fatal]

NARRATIVE: CASE EVENT DATE: 201902
